FAERS Safety Report 10594854 (Version 2)
Quarter: 2014Q4

REPORT INFORMATION
  Report Type: Report from Study
  Country: AU (occurrence: AU)
  Receive Date: 20141120
  Receipt Date: 20141120
  Transmission Date: 20150529
  Serious: Yes (Other)
  Sender: FDA-Public Use
  Company Number: AU-ROCHE-1476308

PATIENT
  Age: 67 Year
  Sex: Female

DRUGS (19)
  1. LANTUS [Concomitant]
     Active Substance: INSULIN GLARGINE
     Route: 065
  2. ASPIRIN. [Concomitant]
     Active Substance: ASPIRIN
     Route: 065
  3. PLAVIX [Concomitant]
     Active Substance: CLOPIDOGREL BISULFATE
     Route: 065
  4. IBILEX [Concomitant]
     Route: 065
  5. VENTOLIN NEBULIZER [Concomitant]
     Indication: DYSPNOEA
     Dosage: EACH MORNING
     Route: 065
  6. SOMAC [Concomitant]
     Active Substance: PANTOPRAZOLE SODIUM
     Route: 065
  7. SEREVENT [Concomitant]
     Active Substance: SALMETEROL XINAFOATE
     Route: 065
  8. PANADOL [Concomitant]
     Active Substance: ACETAMINOPHEN
     Indication: ARTHRALGIA
     Route: 048
  9. STEMZINE [Concomitant]
     Dosage: AS REQUIRED
     Route: 065
  10. CORALAN [Concomitant]
     Route: 065
  11. SPIRACTIN (AUSTRALIA) [Concomitant]
     Route: 065
  12. ACTEMRA [Suspect]
     Active Substance: TOCILIZUMAB
     Indication: RHEUMATOID ARTHRITIS
     Dosage: ONGOING, FREQUENCY APPROXIMATELY EVERY 4 WEEKS
     Route: 042
     Dates: start: 20120608
  13. PANADOL [Concomitant]
     Active Substance: ACETAMINOPHEN
     Route: 048
  14. UREMIDE [Concomitant]
     Active Substance: FUROSEMIDE
     Route: 065
  15. SPIRIVA [Concomitant]
     Active Substance: TIOTROPIUM BROMIDE MONOHYDRATE
     Route: 065
  16. CODEINE [Concomitant]
     Active Substance: CODEINE
     Indication: PAIN
     Dosage: PRN
     Route: 048
  17. EZETROL [Concomitant]
     Active Substance: EZETIMIBE
     Route: 065
  18. ALVESCO [Concomitant]
     Active Substance: CICLESONIDE
     Route: 065
  19. HUMALOG [Concomitant]
     Active Substance: INSULIN LISPRO
     Route: 065

REACTIONS (6)
  - Lower respiratory tract infection [Recovered/Resolved]
  - Dizziness [Unknown]
  - Diabetes mellitus inadequate control [Unknown]
  - Headache [Unknown]
  - Dry mouth [Unknown]
  - Joint swelling [Unknown]

NARRATIVE: CASE EVENT DATE: 201410
